FAERS Safety Report 5302141-3 (Version None)
Quarter: 2007Q2

REPORT INFORMATION
  Report Type: 
  Country: None (occurrence: None)
  Receive Date: 20070419
  Receipt Date: 20070409
  Transmission Date: 20071010
  Serious: Yes (Death, Hospitalization)
  Sender: FDA-Public Use
  Company Number: US-JNJFOC-20070204025

PATIENT
  Sex: Male
  Weight: 103 kg

DRUGS (25)
  1. DOXIL [Suspect]
     Route: 042
  2. DOXIL [Suspect]
     Route: 042
  3. DOXIL [Suspect]
     Route: 042
  4. DOXIL [Suspect]
     Indication: T-CELL LYMPHOMA
     Route: 042
  5. CYCLOPHOSPHAMIDE [Suspect]
     Route: 042
  6. CYCLOPHOSPHAMIDE [Suspect]
     Route: 042
  7. CYCLOPHOSPHAMIDE [Suspect]
     Route: 042
  8. CYCLOPHOSPHAMIDE [Suspect]
     Indication: T-CELL LYMPHOMA
     Route: 042
  9. VINCRISTINE [Suspect]
  10. VINCRISTINE [Suspect]
  11. VINCRISTINE [Suspect]
  12. VINCRISTINE [Suspect]
     Indication: T-CELL LYMPHOMA
  13. DEXAMETHASONE 0.5MG TAB [Suspect]
     Route: 048
  14. DEXAMETHASONE 0.5MG TAB [Suspect]
     Route: 048
  15. DEXAMETHASONE 0.5MG TAB [Suspect]
     Route: 048
  16. DEXAMETHASONE 0.5MG TAB [Suspect]
     Indication: T-CELL LYMPHOMA
     Route: 048
  17. AZTREONAM [Concomitant]
  18. PROCRIT [Concomitant]
     Route: 058
  19. LISINOPRIL [Concomitant]
     Route: 048
  20. METFORMIN HCL [Concomitant]
     Route: 048
  21. METOPROLOL SUCCINATE [Concomitant]
     Route: 048
  22. NYSTATIN [Concomitant]
  23. DARVON [Concomitant]
  24. VALTREX [Concomitant]
     Route: 048
  25. VANCOMYCIN [Concomitant]

REACTIONS (15)
  - BACTERAEMIA [None]
  - BONE MARROW FAILURE [None]
  - CENTRAL LINE INFECTION [None]
  - DIALYSIS [None]
  - DIARRHOEA [None]
  - ENTEROCOCCAL INFECTION [None]
  - ESCHERICHIA INFECTION [None]
  - FEBRILE NEUTROPENIA [None]
  - INFECTION [None]
  - PANCYTOPENIA [None]
  - PLEURAL EFFUSION [None]
  - PNEUMONIA CYTOMEGALOVIRAL [None]
  - PSEUDOMONAS INFECTION [None]
  - PULMONARY OEDEMA [None]
  - STAPHYLOCOCCAL INFECTION [None]
